FAERS Safety Report 12915944 (Version 2)
Quarter: 2016Q4

REPORT INFORMATION
  Report Type: Spontaneous
  Country: AU (occurrence: AU)
  Receive Date: 20161107
  Receipt Date: 20161116
  Transmission Date: 20170207
  Serious: Yes (Hospitalization, Other)
  Sender: FDA-Public Use
  Company Number: AU-SUN PHARMACEUTICAL INDUSTRIES LTD-2016R1-127193

PATIENT
  Age: 54 Year
  Sex: Female

DRUGS (3)
  1. CYCLOPHOSPHAMIDE. [Concomitant]
     Active Substance: CYCLOPHOSPHAMIDE
     Indication: BREAST CANCER STAGE III
     Dosage: UNK
     Route: 065
  2. DOXORUBICIN [Suspect]
     Active Substance: DOXORUBICIN
     Indication: BREAST CANCER STAGE III
     Dosage: 1 CYCLE, 85 MG OF I.V. DOXORUBICIN (60 MG/M2) IN 50ML OF NORMAL SALINE
     Route: 042
  3. SODIUM CHLORIDE. [Concomitant]
     Active Substance: SODIUM CHLORIDE
     Indication: BREAST CANCER STAGE III
     Dosage: 85 MG OF I.V. DOXORUBICIN (60 MG/M2) IN 50ML OF NORMAL SALINE
     Route: 065

REACTIONS (5)
  - Device dislocation [Recovered/Resolved]
  - Extravasation [Recovered/Resolved]
  - Chest pain [Recovered/Resolved]
  - Pulmonary toxicity [Recovered/Resolved]
  - Pleural effusion [Not Recovered/Not Resolved]

NARRATIVE: CASE EVENT DATE: 20150629
